FAERS Safety Report 5243724-9 (Version None)
Quarter: 2007Q1

REPORT INFORMATION
  Report Type: 
  Country: None (occurrence: None)
  Receive Date: 20070222
  Receipt Date: 20070219
  Transmission Date: 20070707
  Serious: Yes (Death, Hospitalization, Other)
  Sender: FDA-Public Use
  Company Number: LB-NOVOPROD-259710

PATIENT
  Age: 1 Year
  Sex: Male

DRUGS (8)
  1. NOVOSEVEN [Suspect]
     Indication: HAEMORRHAGE CONTROL
     Dosage: 90 UG/KG EVERY 2 HRS THE FIRST 24 HRS
     Route: 042
  2. NOVOSEVEN [Suspect]
     Dosage: 45 UG/KG EVERY 3 HRS THE NEXT 24 HRS
  3. NOVOSEVEN [Suspect]
     Dosage: FREQUENCY SPACED TO EVERY 4. HOUR, THEN EVERY 8. HOUR
  4. FENTANYL [Concomitant]
  5. ISOFLURANE [Concomitant]
  6. NIMBEX [Concomitant]
  7. IMIPENEM [Concomitant]
  8. VANCOMYCIN HYDROCHLORIDE [Concomitant]

REACTIONS (1)
  - CEREBRAL ISCHAEMIA [None]
